FAERS Safety Report 14305071 (Version 1)
Quarter: 2017Q4

REPORT INFORMATION
  Report Type: Spontaneous
  Country: JP (occurrence: JP)
  Receive Date: 20171219
  Receipt Date: 20171219
  Transmission Date: 20180321
  Serious: Yes (Other)
  Sender: FDA-Public Use
  Company Number: JP-OTSUKA-009413

PATIENT
  Age: 55 Year
  Sex: Female
  Weight: 62.9 kg

DRUGS (31)
  1. CHOREI-TO [Concomitant]
     Indication: OEDEMA PERIPHERAL
     Dosage: 2.5 G, TID
     Route: 048
     Dates: start: 20100406
  2. ZOPICLONE [Concomitant]
     Active Substance: ZOPICLONE
     Dosage: TABLET
     Dates: start: 20100416
  3. ABILIFY [Suspect]
     Active Substance: ARIPIPRAZOLE
     Dosage: 24 MG, QD
     Route: 048
     Dates: start: 20100407, end: 20100411
  4. LEVOMEPROMAZINE [Suspect]
     Active Substance: LEVOMEPROMAZINE
     Indication: AGITATION
     Dosage: TABS,50 MG:16MAR-11APR2010,25MG;09MAR-15MAR10
     Route: 048
     Dates: start: 20100309, end: 20100411
  5. EURODIN [Concomitant]
     Indication: INSOMNIA
     Dosage: 2 MG, QD
     Route: 048
     Dates: start: 20100202, end: 20100323
  6. PRIMOBOLAN-DEPOT [Concomitant]
     Active Substance: METHENOLONE ENANTHATE
     Indication: OSTEOPOROSIS
     Dosage: 5 MG, BID
     Route: 048
     Dates: start: 20100202
  7. MAGMITT [Concomitant]
     Active Substance: MAGNESIUM OXIDE
     Indication: CONSTIPATION
     Dosage: 330 MG, TID
     Route: 048
     Dates: start: 20100202, end: 20100330
  8. GASMOTIN [Concomitant]
     Active Substance: MOSAPRIDE CITRATE
     Indication: GASTROINTESTINAL HYPOMOTILITY
     Dosage: 5 MG, TID
     Route: 048
     Dates: start: 20100324
  9. CILOSMERCK [Concomitant]
     Indication: VARICOSE VEIN
     Dosage: 50 MG, TID
     Route: 048
     Dates: start: 20100407
  10. PLETAAL OD TABLETS 50MG [Concomitant]
     Active Substance: CILOSTAZOL
     Dosage: TABLET
     Dates: start: 20100407
  11. ABILIFY [Suspect]
     Active Substance: ARIPIPRAZOLE
     Indication: SCHIZOPHRENIA
     Dosage: 6 MG, QD
     Route: 048
     Dates: start: 20100309, end: 20100315
  12. LEVOTOMIN [Suspect]
     Active Substance: LEVOMEPROMAZINE
     Indication: AGITATION
     Dosage: 25 MG, QD
     Route: 048
     Dates: start: 20100309, end: 20100315
  13. THYRADIN S [Concomitant]
     Active Substance: LEVOTHYROXINE SODIUM
     Dosage: 75 UG, QD
     Route: 048
     Dates: start: 20100331
  14. PRIMOBOLAN-DEPOT [Concomitant]
     Active Substance: METHENOLONE ENANTHATE
     Indication: PROTEINURIA
  15. RISPERIDONE. [Concomitant]
     Active Substance: RISPERIDONE
     Dosage: FORM: TABLET.
     Route: 048
     Dates: start: 20100202, end: 20100406
  16. RISPERIDONE. [Concomitant]
     Active Substance: RISPERIDONE
     Indication: HALLUCINATION
     Dosage: 3 MG, QD
     Route: 048
     Dates: start: 20100202, end: 20100308
  17. MAGMITT [Concomitant]
     Active Substance: MAGNESIUM OXIDE
     Dosage: 660 MG, TID
     Route: 048
     Dates: start: 20100331
  18. SHIMBU-TO [Concomitant]
     Indication: OEDEMA PERIPHERAL
     Dosage: 2.5 G, TID
     Route: 048
     Dates: start: 20100316, end: 20100405
  19. GOSHAJINKIGAN [Concomitant]
     Active Substance: HERBALS
     Indication: OEDEMA PERIPHERAL
     Dosage: 2.5 G, TID
     Route: 048
     Dates: start: 20100406
  20. ABILIFY [Suspect]
     Active Substance: ARIPIPRAZOLE
     Dosage: 6 MG, QD
     Route: 048
     Dates: start: 20100414, end: 20100418
  21. LEVOTOMIN [Suspect]
     Active Substance: LEVOMEPROMAZINE
     Indication: INSOMNIA
     Dosage: 50 MG, QD
     Route: 048
     Dates: start: 20100316, end: 20100411
  22. AMOBAN [Concomitant]
     Active Substance: ZOPICLONE
     Indication: INSOMNIA
     Dosage: 7.5 MG, QD
     Route: 048
     Dates: start: 20100416
  23. ABILIFY [Suspect]
     Active Substance: ARIPIPRAZOLE
     Dosage: 18 MG, QD
     Route: 048
     Dates: start: 20100324, end: 20100406
  24. ABILIFY [Suspect]
     Active Substance: ARIPIPRAZOLE
     Dosage: 12 MG, QD
     Route: 048
     Dates: start: 20100412, end: 20100413
  25. RISPERIDONE. [Concomitant]
     Active Substance: RISPERIDONE
     Indication: DELUSION
     Dosage: 2 MG, QD
     Route: 048
     Dates: start: 20100202, end: 20100406
  26. THYRADIN S [Concomitant]
     Active Substance: LEVOTHYROXINE SODIUM
     Indication: HYPOTHYROIDISM
     Dosage: 50 UG, QD
     Route: 048
     Dates: start: 20100202, end: 20100330
  27. CILOSMERCK [Concomitant]
     Indication: PERIPHERAL ARTERIAL OCCLUSIVE DISEASE
  28. GLIMEPIRIDE. [Concomitant]
     Active Substance: GLIMEPIRIDE
     Dosage: TABLET
     Dates: start: 20090623
  29. ABILIFY [Suspect]
     Active Substance: ARIPIPRAZOLE
     Dosage: 12 MG, QD
     Route: 048
     Dates: start: 20100316, end: 20100323
  30. AMARYL [Concomitant]
     Active Substance: GLIMEPIRIDE
     Indication: TYPE 2 DIABETES MELLITUS
     Dosage: 1 DF, DAILY DOSE
     Route: 048
     Dates: start: 20090623
  31. EURODIN [Concomitant]
     Dosage: 4 MG, QD
     Route: 048
     Dates: start: 20100324

REACTIONS (4)
  - Melaena [Recovered/Resolved]
  - Haemorrhoidal haemorrhage [Recovered/Resolved]
  - Hypothermia [Recovering/Resolving]
  - Blood glucose decreased [Recovering/Resolving]

NARRATIVE: CASE EVENT DATE: 20100402
